FAERS Safety Report 16918296 (Version 1)
Quarter: 2019Q4

REPORT INFORMATION
  Report Type: Spontaneous
  Country: US (occurrence: US)
  Receive Date: 20191015
  Receipt Date: 20191015
  Transmission Date: 20200122
  Serious: Yes (Death, Other)
  Sender: FDA-Public Use
  Company Number: US-FRESENIUS KABI-FK201911246

PATIENT
  Age: 42 Year
  Sex: Female

DRUGS (3)
  1. CYCLOPHOSPHAMIDE. [Suspect]
     Active Substance: CYCLOPHOSPHAMIDE
     Indication: LUPUS PNEUMONITIS
     Route: 042
  2. HYDROXYCHLOROQUINE PHOSPHATE [Suspect]
     Active Substance: HYDROXYCHLOROQUINE DIPHOSPHATE
     Indication: LUPUS PNEUMONITIS
     Route: 065
  3. METHYLPREDNISOLONE (MANUFACTURER UNKNOWN) [Suspect]
     Active Substance: METHYLPREDNISOLONE
     Indication: LUPUS PNEUMONITIS
     Route: 042

REACTIONS (6)
  - Acute kidney injury [Unknown]
  - Pneumonia bacterial [Recovering/Resolving]
  - Acute respiratory distress syndrome [Fatal]
  - Lung abscess [Recovering/Resolving]
  - Hypoxia [Fatal]
  - Pneumonia pseudomonal [Recovering/Resolving]
